FAERS Safety Report 7628498-6 (Version None)
Quarter: 2011Q3

REPORT INFORMATION
  Report Type: 
  Country: None (occurrence: None)
  Receive Date: 20110722
  Receipt Date: 20110714
  Transmission Date: 20111222
  Serious: Yes (Life-Threatening, Hospitalization)
  Sender: FDA-Public Use
  Company Number: AR-MEDIMMUNE-MEDI-0013271

PATIENT
  Sex: Male
  Weight: 4.365 kg

DRUGS (5)
  1. SYNAGIS [Suspect]
     Route: 030
     Dates: start: 20110519, end: 20110519
  2. SYNAGIS [Suspect]
     Route: 030
     Dates: start: 20110616, end: 20110616
  3. ACD VITAMINS [Concomitant]
  4. RANITIDINE [Concomitant]
  5. FERROUS SULFATE TAB [Concomitant]

REACTIONS (4)
  - APPARENT LIFE THREATENING EVENT [None]
  - GASTROOESOPHAGEAL REFLUX DISEASE [None]
  - LOSS OF CONSCIOUSNESS [None]
  - APNOEA [None]
